FAERS Safety Report 12464089 (Version 1)
Quarter: 2016Q2

REPORT INFORMATION
  Report Type: Spontaneous
  Country: GB (occurrence: GB)
  Receive Date: 20160614
  Receipt Date: 20160614
  Transmission Date: 20160815
  Serious: Yes (Hospitalization, Other)
  Sender: FDA-Public Use
  Company Number: GB-AMGEN-GBRSP2016074530

PATIENT
  Age: 77 Year
  Sex: Male

DRUGS (1)
  1. ARANESP [Suspect]
     Active Substance: DARBEPOETIN ALFA
     Indication: PRODUCT USED FOR UNKNOWN INDICATION
     Dosage: 60 MCG, (0.3 ML) UNK
     Route: 065

REACTIONS (4)
  - Renal disorder [Unknown]
  - Myocardial infarction [Unknown]
  - Peritonitis [Unknown]
  - Strangulated hernia [Unknown]

NARRATIVE: CASE EVENT DATE: 2016
